FAERS Safety Report 8018365-0 (Version None)
Quarter: 2012Q1

REPORT INFORMATION
  Report Type: 
  Country: None (occurrence: None)
  Receive Date: 20120103
  Receipt Date: 20111227
  Transmission Date: 20120608
  Serious: Yes (Hospitalization, Other)
  Sender: FDA-Public Use
  Company Number: JP-PFIZER INC-2010050216

PATIENT
  Age: 57 Year
  Sex: Female
  Weight: 43.8 kg

DRUGS (7)
  1. RIFABUTIN [Suspect]
     Indication: MYCOBACTERIUM AVIUM COMPLEX INFECTION
     Dosage: 150 MG, 1X/DAY
     Route: 048
     Dates: start: 20100404, end: 20100416
  2. NEOSYNESIN [Concomitant]
     Dosage: UNK
     Route: 047
     Dates: start: 20100404
  3. LEVOFLOXACIN [Concomitant]
     Dosage: UNK
     Route: 047
     Dates: start: 20100404
  4. FLUOROMETHOLONE [Concomitant]
     Dosage: UNK
     Route: 047
     Dates: start: 20100404
  5. BROMFENAC SODIUM [Concomitant]
     Dosage: UNK
     Route: 047
     Dates: start: 20100404
  6. CEFDINIR [Concomitant]
     Dosage: 100 MG, 3X/DAY
     Route: 048
     Dates: start: 20100406, end: 20100408
  7. MYDRIN P [Concomitant]
     Dosage: UNK
     Route: 047
     Dates: start: 20100404

REACTIONS (5)
  - ASPARTATE AMINOTRANSFERASE INCREASED [None]
  - MALAISE [None]
  - ALANINE AMINOTRANSFERASE INCREASED [None]
  - PLATELET COUNT DECREASED [None]
  - WHITE BLOOD CELL COUNT DECREASED [None]
